FAERS Safety Report 13194682 (Version 1)
Quarter: 2017Q1

REPORT INFORMATION
  Report Type: Spontaneous
  Country: US (occurrence: US)
  Receive Date: 20170207
  Receipt Date: 20170207
  Transmission Date: 20170428
  Serious: Yes (Hospitalization, Other)
  Sender: FDA-Public Use
  Company Number: US-JAZZ-2016-US-009339

PATIENT
  Age: 45 Year
  Sex: Male

DRUGS (4)
  1. PRIALT [Suspect]
     Active Substance: ZICONOTIDE ACETATE
     Indication: SPINAL PAIN
     Dosage: UNK ?G, QH
     Route: 037
     Dates: end: 20160502
  2. PRIALT [Suspect]
     Active Substance: ZICONOTIDE ACETATE
     Dosage: 0.542 ?G, QH
     Route: 037
     Dates: start: 20160502, end: 20160513
  3. PRIALT [Suspect]
     Active Substance: ZICONOTIDE ACETATE
     Dosage: UNK ?G, QH
     Route: 037
     Dates: start: 20160516
  4. PRIALT [Suspect]
     Active Substance: ZICONOTIDE ACETATE
     Dosage: UNK ?G, QH
     Route: 037
     Dates: start: 20160513, end: 20160516

REACTIONS (6)
  - Acute psychosis [Not Recovered/Not Resolved]
  - Memory impairment [Unknown]
  - Overdose [Unknown]
  - Device issue [Recovered/Resolved]
  - Feeling drunk [Unknown]
  - Malaise [Unknown]

NARRATIVE: CASE EVENT DATE: 201605
